FAERS Safety Report 15830601 (Version 1)
Quarter: 2019Q1

REPORT INFORMATION
  Report Type: Report from Study
  Country: None (occurrence: US)
  Receive Date: 20190115
  Receipt Date: 20190115
  Transmission Date: 20190417
  Serious: Yes (Other)
  Sender: FDA-Public Use
  Company Number: US-ABBVIE-19S-163-2620207-00

PATIENT
  Age: 39 Year
  Sex: Male

DRUGS (1)
  1. CREON [Suspect]
     Active Substance: PANCRELIPASE AMYLASE\PANCRELIPASE LIPASE\PANCRELIPASE PROTEASE
     Indication: PRODUCT USED FOR UNKNOWN INDICATION
     Route: 048

REACTIONS (6)
  - Pancreatic failure [Unknown]
  - Colitis ulcerative [Unknown]
  - Colitis ulcerative [Unknown]
  - Cryptosporidiosis infection [Unknown]
  - Colitis [Unknown]
  - Appendicitis [Unknown]

NARRATIVE: CASE EVENT DATE: 20171024
